FAERS Safety Report 10745798 (Version 1)
Quarter: 2015Q1

REPORT INFORMATION
  Report Type: Report from Study
  Country: US (occurrence: US)
  Receive Date: 20150128
  Receipt Date: 20150128
  Transmission Date: 20150721
  Serious: Yes (Hospitalization)
  Sender: FDA-Public Use
  Company Number: US-GILEAD-2015-0133803

PATIENT
  Age: 53 Year
  Sex: Female

DRUGS (1)
  1. LEDIPASVIR/SOFOSBUVIR [Suspect]
     Active Substance: LEDIPASVIR\SOFOSBUVIR
     Indication: CHRONIC HEPATITIS C
     Dosage: 1 DF, UNK
     Route: 048
     Dates: start: 20150101

REACTIONS (6)
  - Panic attack [Unknown]
  - Hypoaesthesia [Unknown]
  - Head discomfort [Unknown]
  - Nervousness [Unknown]
  - Ear discomfort [Unknown]
  - Ocular discomfort [Unknown]

NARRATIVE: CASE EVENT DATE: 201501
